FAERS Safety Report 10373777 (Version 1)
Quarter: 2014Q1

REPORT INFORMATION
  Report Type: Spontaneous
  Country: US (occurrence: None)
  Receive Date: 20140306
  Receipt Date: 20140306
  Transmission Date: 20141002
  Serious: Yes (Other)
  Sender: FDA-Public Use
  Company Number: 163-21880-13105650

PATIENT
  Age: 72 Year
  Sex: Female

DRUGS (9)
  1. REVLIMID (LENALIDOMIDE) (10 MILLIGRAM, CAPSULES) [Suspect]
     Indication: MYELODYSPLASTIC SYNDROME
     Dosage: 29-APR-2013 - TEMPORARILY INTERRUPTED?10 MG, 21 IN 28 D, PO
     Route: 048
     Dates: start: 20130429
  2. PREDNISONE [Concomitant]
  3. LISINOPRIL [Concomitant]
  4. PROTONIX [Concomitant]
  5. GLUCOSAMINE [Concomitant]
  6. CALCIUM [Concomitant]
  7. VITAMIN D (ERGOCALCIFEROL) [Concomitant]
  8. BLOOD [Concomitant]
  9. PLATELET (DIPYRIDAMOLE) [Concomitant]

REACTIONS (3)
  - Platelet count decreased [None]
  - Full blood count decreased [None]
  - Epistaxis [None]
